FAERS Safety Report 5791052-5 (Version None)
Quarter: 2008Q2

REPORT INFORMATION
  Report Type: 
  Country: None (occurrence: None)
  Receive Date: 20080626
  Receipt Date: 20080227
  Transmission Date: 20081010
  Serious: No
  Sender: FDA-Public Use
  Company Number: A0712081A

PATIENT

DRUGS (3)
  1. ALLI [Suspect]
  2. MULTI-VITAMIN [Concomitant]
  3. CALCIUM [Concomitant]

REACTIONS (1)
  - FATIGUE [None]
